FAERS Safety Report 9238223 (Version 4)
Quarter: 2013Q3

REPORT INFORMATION
  Report Type: Spontaneous
  Country: US (occurrence: None)
  Receive Date: 20130415
  Receipt Date: 20130708
  Transmission Date: 20140515
  Serious: Yes (Other)
  Sender: FDA-Public Use
  Company Number: AUR-APL-2013-03062

PATIENT
  Sex: Female

DRUGS (4)
  1. MELOXICAM [Suspect]
     Indication: PRODUCT USED FOR UNKNOWN INDICATION
  2. CELEBREX [Suspect]
     Indication: ARTHRALGIA
     Route: 048
     Dates: start: 20130319
  3. IRON (IRON) [Concomitant]
  4. VOLTAREN [Suspect]

REACTIONS (5)
  - Abdominal pain upper [None]
  - Gastric bypass [None]
  - Gastric disorder [None]
  - Depressed mood [None]
  - Emotional disorder [None]
